FAERS Safety Report 8012632-2 (Version None)
Quarter: 2011Q4

REPORT INFORMATION
  Report Type: 
  Country: None (occurrence: None)
  Receive Date: 20111229
  Receipt Date: 20111220
  Transmission Date: 20120403
  Serious: Yes (Hospitalization)
  Sender: FDA-Public Use
  Company Number: JP-JNJFOC-20111209771

PATIENT
  Age: 22 Year
  Sex: Male

DRUGS (4)
  1. COLCHICINE [Concomitant]
     Route: 048
  2. CYCLOSPORINE [Concomitant]
     Route: 065
  3. REMICADE [Suspect]
     Route: 042
     Dates: start: 20101201
  4. REMICADE [Suspect]
     Indication: BEHCET'S SYNDROME
     Dosage: 8TH DOSE
     Route: 042
     Dates: start: 20110915

REACTIONS (1)
  - RHABDOMYOLYSIS [None]
